FAERS Safety Report 9050347 (Version 1)
Quarter: 2013Q1

REPORT INFORMATION
  Report Type: Spontaneous
  Country: US (occurrence: US)
  Receive Date: 20130205
  Receipt Date: 20130205
  Transmission Date: 20140127
  Serious: No
  Sender: FDA-Public Use
  Company Number: US-JNJFOC-20130116210

PATIENT
  Sex: 0

DRUGS (1)
  1. REMICADE [Suspect]
     Indication: CROHN^S DISEASE
     Route: 042

REACTIONS (1)
  - Herpes zoster [Unknown]
